FAERS Safety Report 7105508-6 (Version None)
Quarter: 2010Q4

REPORT INFORMATION
  Report Type: 
  Country: None (occurrence: None)
  Receive Date: 20101116
  Receipt Date: 20101101
  Transmission Date: 20110411
  Serious: Yes (Hospitalization, Other)
  Sender: FDA-Public Use
  Company Number: US-ROCHE-718960

PATIENT
  Sex: Male

DRUGS (2)
  1. ACCUTANE [Suspect]
     Dosage: 40 MG TWICE DAILY, ALTERNATE WITH 40 MG ONCE DAILY
     Route: 048
     Dates: start: 19991012, end: 19991115
  2. ACCUTANE [Suspect]
     Route: 048
     Dates: start: 19991115, end: 20000327

REACTIONS (14)
  - COLITIS ULCERATIVE [None]
  - CROHN'S DISEASE [None]
  - DEPRESSION [None]
  - DIZZINESS [None]
  - DRY EYE [None]
  - DRY SKIN [None]
  - FATIGUE [None]
  - GASTROINTESTINAL INJURY [None]
  - INFLAMMATORY BOWEL DISEASE [None]
  - LIP DRY [None]
  - MUSCULOSKELETAL PAIN [None]
  - ORAL HERPES [None]
  - PORTAL VEIN THROMBOSIS [None]
  - SUICIDAL IDEATION [None]
